FAERS Safety Report 9961912 (Version 2)
Quarter: 2014Q1

REPORT INFORMATION
  Report Type: Report from Study
  Country: US (occurrence: US)
  Receive Date: 20140305
  Receipt Date: 20140305
  Transmission Date: 20141002
  Serious: No
  Sender: FDA-Public Use
  Company Number: US-ABBVIE-12P-163-1011952-00

PATIENT
  Sex: Female
  Weight: 68.1 kg

DRUGS (26)
  1. HUMIRA [Suspect]
     Indication: RHEUMATOID ARTHRITIS
     Dates: start: 201201, end: 20121024
  2. PREDNISONE [Concomitant]
     Indication: RHEUMATOID ARTHRITIS
  3. LYRICA [Concomitant]
     Indication: PAIN
  4. LYRICA [Concomitant]
     Indication: FIBROMYALGIA
  5. OMEPRAZOLE [Concomitant]
     Indication: GASTROOESOPHAGEAL REFLUX DISEASE
  6. TRILIPIX [Concomitant]
     Indication: BLOOD CHOLESTEROL INCREASED
  7. TRILIPIX [Concomitant]
     Indication: BLOOD TRIGLYCERIDES
  8. OPANA [Concomitant]
     Indication: PAIN
  9. PLAQUENIL [Concomitant]
     Indication: RHEUMATOID ARTHRITIS
     Dates: start: 201211
  10. SINGULAIR [Concomitant]
     Indication: ASTHMA
  11. ASPIRIN [Concomitant]
     Indication: CARDIOVASCULAR EVENT PROPHYLAXIS
  12. PAXIL [Concomitant]
     Indication: DEPRESSION
  13. ZETIA [Concomitant]
     Indication: BLOOD CHOLESTEROL INCREASED
  14. WELCHOL [Concomitant]
     Indication: BLOOD CHOLESTEROL INCREASED
  15. CALCIUM [Concomitant]
     Indication: MINERAL SUPPLEMENTATION
  16. FISH OIL [Concomitant]
     Indication: VITAMIN SUPPLEMENTATION
  17. FISH OIL [Concomitant]
     Indication: BLOOD CHOLESTEROL
  18. LORTAB [Concomitant]
     Indication: PAIN
  19. KLONOPIN [Concomitant]
     Indication: ANXIETY
  20. FENTYNL LOZENGES [Concomitant]
     Indication: PAIN
  21. OXYMORPHONE [Concomitant]
     Indication: PAIN
  22. ACTIQ [Concomitant]
     Indication: PAIN
  23. CALCIUM WITH MAGNESIUM [Concomitant]
     Indication: OSTEOPOROSIS
  24. VITAMIN D 3 [Concomitant]
     Indication: HYPOVITAMINOSIS
  25. FLONASE [Concomitant]
     Indication: SINUS DISORDER
  26. CLONIDINE [Concomitant]
     Indication: PANIC ATTACK

REACTIONS (9)
  - Asthma [Recovered/Resolved]
  - Tracheobronchitis [Recovered/Resolved]
  - Asthma [Recovered/Resolved]
  - Sinusitis [Recovered/Resolved]
  - Sleep apnoea syndrome [Not Recovered/Not Resolved]
  - Rib fracture [Recovered/Resolved]
  - Bronchitis [Recovered/Resolved]
  - Sinusitis [Recovered/Resolved]
  - Injection site erythema [Recovered/Resolved]
